FAERS Safety Report 5232125-5 (Version None)
Quarter: 2007Q1

REPORT INFORMATION
  Report Type: 
  Country: None (occurrence: None)
  Receive Date: 20070205
  Receipt Date: 20070130
  Transmission Date: 20070707
  Serious: Yes (Hospitalization, Disabling)
  Sender: FDA-Public Use
  Company Number: SP01029

PATIENT
  Age: 57 Year
  Sex: Female
  Weight: 57.6068 kg

DRUGS (2)
  1. OSMOPREP [Suspect]
     Indication: COLONOSCOPY
     Dosage: (SEE TEXT), ORAL
     Route: 048
     Dates: start: 20061112, end: 20061112
  2. VITAMINS [Concomitant]

REACTIONS (18)
  - ACIDOSIS [None]
  - AGGRESSION [None]
  - AGITATION [None]
  - ASTHENIA [None]
  - CONFUSIONAL STATE [None]
  - DIZZINESS [None]
  - GRAND MAL CONVULSION [None]
  - HEADACHE [None]
  - HYPONATRAEMIA [None]
  - LETHARGY [None]
  - MUSCLE TWITCHING [None]
  - NECK PAIN [None]
  - PALLOR [None]
  - PARKINSONIAN REST TREMOR [None]
  - SOMNOLENCE [None]
  - UNRESPONSIVE TO STIMULI [None]
  - URINARY RETENTION [None]
  - VOMITING [None]
